FAERS Safety Report 9156658 (Version 1)
Quarter: 2013Q1

REPORT INFORMATION
  Report Type: Spontaneous
  Country: US (occurrence: None)
  Receive Date: 20130308
  Receipt Date: 20130308
  Transmission Date: 20140127
  Serious: Yes (Hospitalization, Other)
  Sender: FDA-Public Use
  Company Number: None

PATIENT
  Age: 57 Year
  Sex: Male
  Weight: 107.5 kg

DRUGS (2)
  1. CYMBALTA [Suspect]
     Indication: DEPRESSION
     Dosage: 2 - 60 MG CAPS  1 A DAY
     Dates: start: 201203
  2. CYMBALTA [Suspect]
     Indication: BONE PAIN
     Dosage: 2 - 60 MG CAPS  1 A DAY
     Dates: start: 201203

REACTIONS (6)
  - Blister [None]
  - Rash erythematous [None]
  - Ulcer [None]
  - Abdominal pain upper [None]
  - Hepatic steatosis [None]
  - Pain [None]
